FAERS Safety Report 11690848 (Version 1)
Quarter: 2015Q4

REPORT INFORMATION
  Report Type: Report from Study
  Country: CA (occurrence: CA)
  Receive Date: 20151102
  Receipt Date: 20151102
  Transmission Date: 20160304
  Serious: Yes (Other)
  Sender: FDA-Public Use
  Company Number: CA-JNJFOC-20151023609

PATIENT
  Age: 72 Year
  Sex: Male

DRUGS (12)
  1. CENTURY SENIOR MULTIVITAMIN [Concomitant]
  2. ASPIRIN. [Concomitant]
     Active Substance: ASPIRIN
  3. RAMIPRIL. [Concomitant]
     Active Substance: RAMIPRIL
  4. VITAMIN D [Concomitant]
     Active Substance: CHOLECALCIFEROL
  5. RITUXIMAB [Suspect]
     Active Substance: RITUXIMAB
     Indication: CHRONIC LYMPHOCYTIC LEUKAEMIA
     Route: 042
     Dates: end: 20151007
  6. DOVONEX [Concomitant]
     Active Substance: CALCIPOTRIENE
     Route: 061
  7. LIPITOR [Concomitant]
     Active Substance: ATORVASTATIN CALCIUM
  8. NITRO-DUR [Concomitant]
     Active Substance: NITROGLYCERIN
  9. AMLODIPINE [Concomitant]
     Active Substance: AMLODIPINE BESYLATE
  10. OMEGA-3 ACIDS [Concomitant]
     Active Substance: OMEGA-3 FATTY ACIDS
  11. METOPROLOL [Concomitant]
     Active Substance: METOPROLOL
  12. IBRUTINIB [Suspect]
     Active Substance: IBRUTINIB
     Indication: CHRONIC LYMPHOCYTIC LEUKAEMIA
     Route: 048
     Dates: start: 20150630, end: 20151007

REACTIONS (1)
  - Myelodysplastic syndrome [Not Recovered/Not Resolved]

NARRATIVE: CASE EVENT DATE: 20150923
